FAERS Safety Report 24923009 (Version 2)
Quarter: 2025Q1

REPORT INFORMATION
  Report Type: Spontaneous
  Country: US (occurrence: US)
  Receive Date: 20250204
  Receipt Date: 20250210
  Transmission Date: 20250408
  Serious: No
  Sender: TORRENT PHARMA INC.
  Company Number: US-TORRENT-00014189

PATIENT
  Sex: Female
  Weight: 172 kg

DRUGS (5)
  1. TIOPRONIN [Suspect]
     Active Substance: TIOPRONIN
     Indication: Cystinuria
     Dosage: ONE TABLET TWICE A DAY
     Route: 065
  2. ATORVASTATIN [Concomitant]
     Active Substance: ATORVASTATIN
     Indication: Blood cholesterol
     Route: 048
  3. ELIQUIS [Concomitant]
     Active Substance: APIXABAN
     Indication: Pacemaker syndrome
     Dosage: 5MG BY ORALLY TWICE DAILY FOR PACEMAKER
     Route: 048
  4. METOPROLOL [Concomitant]
     Active Substance: METOPROLOL
     Indication: Hypertension
     Dosage: 50MG ORALLY DAILY FOR HYPERTENSION
     Route: 048
  5. SODIUM BICARBONATE [Concomitant]
     Active Substance: SODIUM BICARBONATE
     Indication: Acidosis
     Dosage: 325MG ORALLY TWICE DAILY FOR URINARY ACIDOSIS
     Route: 048

REACTIONS (1)
  - Off label use [Unknown]
